FAERS Safety Report 6103562-1 (Version None)
Quarter: 2009Q1

REPORT INFORMATION
  Report Type: 
  Country: None (occurrence: None)
  Receive Date: 20090305
  Receipt Date: 20090227
  Transmission Date: 20090719
  Serious: Yes (Other)
  Sender: FDA-Public Use
  Company Number: US-BAYER-200914352NA

PATIENT
  Sex: Male

DRUGS (4)
  1. SORAFENIB [Suspect]
     Indication: NEOPLASM
  2. SIROLIMUS [Suspect]
     Indication: NEOPLASM
  3. TARCEVA [Suspect]
     Indication: NEOPLASM
  4. SUTENT [Suspect]
     Indication: NEOPLASM

REACTIONS (1)
  - NEOPLASM PROGRESSION [None]
